FAERS Safety Report 7440018-8 (Version None)
Quarter: 2011Q2

REPORT INFORMATION
  Report Type: 
  Country: None (occurrence: None)
  Receive Date: 20110427
  Receipt Date: 20110414
  Transmission Date: 20111010
  Serious: Yes (Other)
  Sender: FDA-Public Use
  Company Number: PHHY2011US32518

PATIENT
  Sex: Male

DRUGS (1)
  1. GLEEVEC [Suspect]
     Dosage: 400 MG, DAILY
     Route: 048

REACTIONS (5)
  - MEMORY IMPAIRMENT [None]
  - MYALGIA [None]
  - COGNITIVE DISORDER [None]
  - BONE PAIN [None]
  - PAIN [None]
